FAERS Safety Report 8264813-0 (Version None)
Quarter: 2012Q2

REPORT INFORMATION
  Report Type: 
  Country: None (occurrence: None)
  Receive Date: 20120403
  Receipt Date: 20120323
  Transmission Date: 20120825
  Serious: Yes (Hospitalization)
  Sender: FDA-Public Use
  Company Number: 2012S1000226

PATIENT
  Age: 50 Year
  Sex: Female
  Weight: 52 kg

DRUGS (2)
  1. CELECTOL [Concomitant]
  2. LIVALO [Suspect]
     Indication: HYPERLIPIDAEMIA
     Dosage: 1 MG;1X;PO
     Route: 048
     Dates: start: 20120202, end: 20120216

REACTIONS (1)
  - RHABDOMYOLYSIS [None]
